FAERS Safety Report 8581336-X (Version None)
Quarter: 2012Q3

REPORT INFORMATION
  Report Type: 
  Country: None (occurrence: None)
  Receive Date: 20120809
  Receipt Date: 20120807
  Transmission Date: 20120928
  Serious: Yes (Hospitalization, Other)
  Sender: FDA-Public Use
  Company Number: PHHY2008BR16175

PATIENT
  Sex: Male

DRUGS (2)
  1. AMLODOPINE BESYLATE AND VALSARTAN [Suspect]
     Indication: BLOOD PRESSURE
     Dosage: 1 DF (320 MG VALS/10 MG AMLO), A DAY
     Route: 048
  2. AMLODOPINE BESYLATE AND VALSARTAN [Suspect]
     Dosage: 1 DF, 1 DF (320 MG VALS/10 MG AMLO), A DAY

REACTIONS (12)
  - FEELING ABNORMAL [None]
  - CARDIAC ARREST [None]
  - OEDEMA MOUTH [None]
  - LIP SWELLING [None]
  - ABASIA [None]
  - FATIGUE [None]
  - GASTROINTESTINAL INFECTION [None]
  - HYPERTENSION [None]
  - BLOOD POTASSIUM DECREASED [None]
  - BLOOD PRESSURE DECREASED [None]
  - DRY MOUTH [None]
  - PAIN [None]
